FAERS Safety Report 13769342 (Version 1)
Quarter: 2017Q3

REPORT INFORMATION
  Report Type: Spontaneous
  Country: US (occurrence: US)
  Receive Date: 20170719
  Receipt Date: 20170719
  Transmission Date: 20171127
  Serious: No
  Sender: FDA-Public Use
  Company Number: US-BAUSCH-BL-2016-027571

PATIENT
  Age: 22 Year
  Sex: Female
  Weight: 113.5 kg

DRUGS (3)
  1. XIFAXAN [Suspect]
     Active Substance: RIFAXIMIN
     Indication: BREATH ODOUR
     Route: 048
     Dates: start: 20161108, end: 20161109
  2. PROTONIX [Concomitant]
     Active Substance: PANTOPRAZOLE SODIUM
     Indication: GASTROOESOPHAGEAL REFLUX DISEASE
     Route: 048
     Dates: start: 2015
  3. TOPAMAX [Concomitant]
     Active Substance: TOPIRAMATE
     Indication: MIGRAINE PROPHYLAXIS
     Dosage: AT NIGHT TIME
     Route: 048
     Dates: start: 2016

REACTIONS (5)
  - Off label use [Unknown]
  - Insomnia [Not Recovered/Not Resolved]
  - Rash [Not Recovered/Not Resolved]
  - Migraine [Not Recovered/Not Resolved]
  - Fatigue [Not Recovered/Not Resolved]

NARRATIVE: CASE EVENT DATE: 20161108
